FAERS Safety Report 14170063 (Version 1)
Quarter: 2017Q4

REPORT INFORMATION
  Report Type: Spontaneous
  Country: US (occurrence: US)
  Receive Date: 20171108
  Receipt Date: 20171108
  Transmission Date: 20180321
  Serious: No
  Sender: FDA-Public Use
  Company Number: US-009507513-1710USA014075

PATIENT
  Age: 71 Year
  Sex: Male

DRUGS (3)
  1. NORTHERA [Suspect]
     Active Substance: DROXIDOPA
     Dosage: UNK
     Route: 048
     Dates: start: 20171004
  2. SINEMET [Suspect]
     Active Substance: CARBIDOPA\LEVODOPA
     Dosage: UNK
     Route: 048
  3. NORTHERA [Suspect]
     Active Substance: DROXIDOPA
     Dosage: 600 MG, TID
     Route: 048

REACTIONS (2)
  - Blood pressure decreased [Unknown]
  - Skin discolouration [Unknown]

NARRATIVE: CASE EVENT DATE: 201710
